FAERS Safety Report 9915872 (Version 1)
Quarter: 2014Q1

REPORT INFORMATION
  Report Type: Spontaneous
  Country: US (occurrence: None)
  Receive Date: 20140219
  Receipt Date: 20140219
  Transmission Date: 20141002
  Serious: Yes (Death)
  Sender: FDA-Public Use
  Company Number: PR-AE14-000172

PATIENT
  Age: 59 Year
  Sex: Male

DRUGS (1)
  1. GOODYS EXTRA STRENGTH [Suspect]
     Indication: PAIN
     Dosage: 2 POWDERS, ORAL
     Route: 048

REACTIONS (2)
  - Product label issue [None]
  - Gastric ulcer haemorrhage [None]
